FAERS Safety Report 23228556 (Version 1)
Quarter: 2023Q4

REPORT INFORMATION
  Report Type: Spontaneous
  Country: None (occurrence: CN)
  Receive Date: 20231125
  Receipt Date: 20231125
  Transmission Date: 20240109
  Serious: Yes (Hospitalization)
  Sender: FDA-Public Use
  Company Number: CN-Jiangsu Hansoh Pharmaceutical Co., Ltd-2148688

PATIENT
  Sex: Male

DRUGS (2)
  1. GEMCITABINE [Suspect]
     Active Substance: GEMCITABINE
     Indication: Nasopharyngeal cancer stage IV
     Route: 041
     Dates: start: 20230407, end: 20230407
  2. CISPLATIN [Suspect]
     Active Substance: CISPLATIN
     Route: 041
     Dates: start: 20230407, end: 20230407

REACTIONS (18)
  - Hyponatraemia [Recovering/Resolving]
  - Platelet count decreased [Recovering/Resolving]
  - White blood cell count decreased [Unknown]
  - Neutrophil count decreased [Unknown]
  - Anaemia [Unknown]
  - Hypochloraemia [Recovered/Resolved]
  - Hypophosphataemia [Unknown]
  - Hypomagnesaemia [Recovered/Resolved]
  - Hypercholesterolaemia [Recovered/Resolved]
  - Lymphocyte count decreased [Unknown]
  - Headache [Unknown]
  - Asthenia [Unknown]
  - Decreased appetite [Unknown]
  - Nausea [Unknown]
  - Vomiting [Unknown]
  - Blood creatinine increased [Unknown]
  - Blood urea increased [Unknown]
  - Off label use [Unknown]

NARRATIVE: CASE EVENT DATE: 20230407
